FAERS Safety Report 6369965-5 (Version None)
Quarter: 2009Q3

REPORT INFORMATION
  Report Type: 
  Country: None (occurrence: None)
  Receive Date: 20090923
  Receipt Date: 20071120
  Transmission Date: 20100115
  Serious: Yes (Hospitalization)
  Sender: FDA-Public Use
  Company Number: US-ASTRAZENECA-2006UW07884

PATIENT
  Age: 16072 Day
  Sex: Female
  Weight: 94.3 kg

DRUGS (22)
  1. SEROQUEL [Suspect]
     Indication: BIPOLAR DISORDER
     Route: 048
     Dates: start: 20030101
  2. SEROQUEL [Suspect]
     Indication: DEPRESSION
     Route: 048
     Dates: start: 20030101
  3. SEROQUEL [Suspect]
     Indication: MOOD SWINGS
     Route: 048
     Dates: start: 20030101
  4. SEROQUEL [Suspect]
     Indication: ANXIETY
     Route: 048
     Dates: start: 20030101
  5. SEROQUEL [Suspect]
     Dosage: 25 MG TO 200 MG
     Route: 048
     Dates: start: 20040329
  6. SEROQUEL [Suspect]
     Dosage: 25 MG TO 200 MG
     Route: 048
     Dates: start: 20040329
  7. SEROQUEL [Suspect]
     Dosage: 25 MG TO 200 MG
     Route: 048
     Dates: start: 20040329
  8. SEROQUEL [Suspect]
     Dosage: 25 MG TO 200 MG
     Route: 048
     Dates: start: 20040329
  9. LEXAPRO [Concomitant]
     Route: 048
     Dates: start: 20040412
  10. TRAZODONE HCL [Concomitant]
     Indication: SLEEP DISORDER
     Dosage: 50 TO 100 MG
     Dates: start: 20030818
  11. AMITRIPTYLINE HCL [Concomitant]
     Indication: ANXIETY
     Dosage: 20 TO 50 MG
     Dates: start: 20030818
  12. AMITRIPTYLINE HCL [Concomitant]
     Indication: PAIN
     Dosage: 20 TO 50 MG
     Dates: start: 20030818
  13. HYDROCHLOROTHIAZIDE [Concomitant]
     Route: 048
     Dates: start: 20030711
  14. ALPRAZOLAM [Concomitant]
     Indication: ANXIETY
     Dates: start: 20040330
  15. CLONAZEPAM [Concomitant]
     Indication: ANXIETY
     Route: 048
     Dates: start: 20020430
  16. AMBIEN [Concomitant]
     Indication: SLEEP DISORDER
     Dosage: 20 TO 30 MG
     Route: 048
     Dates: start: 20040412
  17. CELEXA [Concomitant]
     Route: 048
     Dates: start: 20020430
  18. WELLBUTRIN [Concomitant]
     Dates: start: 20051104
  19. GLUCOPHAGE [Concomitant]
     Dosage: 500 TO 1000 MG
     Dates: start: 20051207
  20. LIPITOR [Concomitant]
     Dates: start: 20051207
  21. VICODIN [Concomitant]
     Indication: PAIN
     Dosage: 5 TO 500 MG EVERY 6 HOURS
     Route: 048
     Dates: start: 20020829
  22. VICODIN [Concomitant]
     Dosage: 7.5 TO 500 MG 1 TABLET THREE TIMES A DAY
     Route: 048
     Dates: start: 20021005

REACTIONS (3)
  - AKATHISIA [None]
  - DIABETES MELLITUS [None]
  - TYPE 2 DIABETES MELLITUS [None]
